FAERS Safety Report 19738321 (Version 1)
Quarter: 2021Q3

REPORT INFORMATION
  Report Type: Spontaneous
  Country: US (occurrence: US)
  Receive Date: 20210823
  Receipt Date: 20210823
  Transmission Date: 20211014
  Serious: Yes (Hospitalization)
  Sender: FDA-Public Use
  Company Number: None

PATIENT
  Age: 75 Year
  Sex: Male

DRUGS (1)
  1. REGEN?COV [Suspect]
     Active Substance: CASIRIVIMAB\IMDEVIMAB
     Indication: COVID-19
     Dates: start: 20210820, end: 20210820

REACTIONS (4)
  - Syncope [None]
  - Cerebellar calcification [None]
  - Cerebellar haemorrhage [None]
  - Skin laceration [None]

NARRATIVE: CASE EVENT DATE: 20210820
